FAERS Safety Report 12358974 (Version 1)
Quarter: 2016Q2

REPORT INFORMATION
  Report Type: Spontaneous
  Country: US (occurrence: None)
  Receive Date: 20160511
  Receipt Date: 20160511
  Transmission Date: 20160815
  Serious: Yes (Other)
  Sender: FDA-Public Use
  Company Number: None

PATIENT
  Age: 24 Year
  Sex: Female
  Weight: 95.71 kg

DRUGS (8)
  1. QSYMIA [Concomitant]
     Active Substance: PHENTERMINE HYDROCHLORIDE\TOPIRAMATE
  2. ZYRTEC [Concomitant]
     Active Substance: CETIRIZINE HYDROCHLORIDE
  3. EPIDUO [Suspect]
     Active Substance: ADAPALENE\BENZOYL PEROXIDE
     Indication: ACNE
     Dosage: 2 GRAMS IN THE MORNING APPLIED TO A SURFACE, USUALLY THE SKIN
     Route: 061
     Dates: start: 20160503, end: 20160510
  4. TRINESSA [Concomitant]
     Active Substance: ETHINYL ESTRADIOL\NORGESTIMATE
  5. FLONASE [Concomitant]
     Active Substance: FLUTICASONE PROPIONATE
  6. OMEPRAZOLE. [Concomitant]
     Active Substance: OMEPRAZOLE
  7. DOXYCYCLINE. [Concomitant]
     Active Substance: DOXYCYCLINE
  8. DAPSONE GEL [Concomitant]

REACTIONS (6)
  - Pain [None]
  - Expired product administered [None]
  - Application site erythema [None]
  - Burning sensation [None]
  - Drug dispensing error [None]
  - Feeling hot [None]

NARRATIVE: CASE EVENT DATE: 20160505
